FAERS Safety Report 19891547 (Version 1)
Quarter: 2021Q3

REPORT INFORMATION
  Report Type: Spontaneous
  Country: DE (occurrence: DE)
  Receive Date: 20210928
  Receipt Date: 20210928
  Transmission Date: 20211014
  Serious: Yes (Death)
  Sender: FDA-Public Use
  Company Number: DE-PURDUE-USA-2021-0285097

PATIENT
  Sex: Female

DRUGS (1)
  1. MST [MORPHINE SULFATE] [Suspect]
     Active Substance: MORPHINE SULFATE
     Indication: ANALGESIC THERAPY
     Dosage: 30 MG, UNK
     Route: 065

REACTIONS (2)
  - Death [Fatal]
  - No adverse event [Unknown]
